FAERS Safety Report 16423107 (Version 1)
Quarter: 2019Q2

REPORT INFORMATION
  Report Type: Spontaneous
  Country: US (occurrence: US)
  Receive Date: 20190612
  Receipt Date: 20190612
  Transmission Date: 20190711
  Serious: No
  Sender: FDA-Public Use
  Company Number: US-COVIS PHARMA B.V.-2018COV03755

PATIENT
  Sex: Female
  Weight: 43.08 kg

DRUGS (8)
  1. OMEPRAZOLE MAGNESIUM. [Suspect]
     Active Substance: OMEPRAZOLE MAGNESIUM
  2. NORCO [Concomitant]
     Active Substance: ACETAMINOPHEN\HYDROCODONE BITARTRATE
  3. NEXIUM [Suspect]
     Active Substance: ESOMEPRAZOLE MAGNESIUM
     Dosage: 40 MG AT NIGHT
     Dates: start: 2012
  4. ASPIRIN. [Concomitant]
     Active Substance: ASPIRIN
  5. NEXIUM 24HR [Suspect]
     Active Substance: ESOMEPRAZOLE MAGNESIUM
     Dosage: 20 MG, 2X/DAY
     Dates: start: 201808
  6. CRESTOR [Suspect]
     Active Substance: ROSUVASTATIN CALCIUM
  7. NEXIUM [Suspect]
     Active Substance: ESOMEPRAZOLE MAGNESIUM
     Indication: DYSPEPSIA
     Dosage: 40 MG, 1X/DAY
     Dates: start: 2001
  8. LYRICA [Concomitant]
     Active Substance: PREGABALIN

REACTIONS (15)
  - Dysuria [Unknown]
  - Hypersensitivity [Unknown]
  - Vomiting [Unknown]
  - Diarrhoea [Unknown]
  - Dysphagia [Unknown]
  - Drug ineffective [Unknown]
  - Cerebral disorder [Unknown]
  - Dyschezia [Unknown]
  - Dyspepsia [Unknown]
  - Pain [Unknown]
  - Oropharyngeal pain [Unknown]
  - Weight decreased [Unknown]
  - Malaise [Unknown]
  - Middle insomnia [Unknown]
  - Haemorrhoids [Unknown]
